FAERS Safety Report 14645582 (Version 1)
Quarter: 2018Q1

REPORT INFORMATION
  Report Type: Spontaneous
  Country: JP (occurrence: JP)
  Receive Date: 20180316
  Receipt Date: 20180316
  Transmission Date: 20180509
  Serious: Yes (Death, Hospitalization)
  Sender: FDA-Public Use
  Company Number: JP-SUN PHARMACEUTICAL INDUSTRIES LTD-2018RR-166396

PATIENT
  Age: 50 Year
  Sex: Male
  Weight: 45.5 kg

DRUGS (8)
  1. BORTEZOMIB [Suspect]
     Active Substance: BORTEZOMIB
     Indication: PLASMA CELL MYELOMA
  2. DEXAMETHASONE. [Suspect]
     Active Substance: DEXAMETHASONE
     Indication: PLASMA CELL MYELOMA
  3. DEXAMETHASONE. [Suspect]
     Active Substance: DEXAMETHASONE
     Indication: AMYLOIDOSIS
     Dosage: 40 MG, 1/WEEK, THREE CYCLES
     Route: 065
  4. MELPHALAN. [Suspect]
     Active Substance: MELPHALAN
     Indication: AMYLOIDOSIS
     Dosage: 140 MG/M2
     Route: 065
  5. FILGRASTIM [Suspect]
     Active Substance: FILGRASTIM
     Indication: PLASMA CELL MYELOMA
  6. BORTEZOMIB [Suspect]
     Active Substance: BORTEZOMIB
     Indication: AMYLOIDOSIS
     Dosage: 1.3 MG/M2, 1/WEEK, THREE CYCLES
     Route: 065
  7. MELPHALAN. [Suspect]
     Active Substance: MELPHALAN
     Indication: PLASMA CELL MYELOMA
  8. FILGRASTIM [Suspect]
     Active Substance: FILGRASTIM
     Indication: AMYLOIDOSIS
     Dosage: 600 ?G, DAILY
     Route: 058

REACTIONS (4)
  - Diarrhoea [Unknown]
  - Enterobacter sepsis [Fatal]
  - Urticaria [Recovering/Resolving]
  - Febrile neutropenia [Recovered/Resolved]
